FAERS Safety Report 19778588 (Version 1)
Quarter: 2021Q3

REPORT INFORMATION
  Report Type: Spontaneous
  Country: US (occurrence: US)
  Receive Date: 20210831
  Receipt Date: 20210831
  Transmission Date: 20211014
  Serious: No
  Sender: FDA-Public Use
  Company Number: None

PATIENT
  Sex: Female

DRUGS (1)
  1. NIKKI [Suspect]
     Active Substance: DROSPIRENONE\ETHINYL ESTRADIOL
     Dosage: ?          OTHER DOSE:3MG/.02MG;?
     Route: 048
     Dates: start: 2021

REACTIONS (1)
  - Rash [None]

NARRATIVE: CASE EVENT DATE: 2021
